FAERS Safety Report 8551708-8 (Version None)
Quarter: 2012Q3

REPORT INFORMATION
  Report Type: 
  Country: None (occurrence: None)
  Receive Date: 20120723
  Receipt Date: 20120723
  Transmission Date: 20120928
  Serious: Yes (Other)
  Sender: FDA-Public Use
  Company Number: None

PATIENT

DRUGS (2)
  1. DILTIAZEM HYDROCHLORIDE [Suspect]
     Indication: SUPRAVENTRICULAR TACHYCARDIA
     Dosage: ONE TABLET DAILY OROPHARINGEAL FEW MONTH IN 2008
     Route: 049
     Dates: start: 20080101
  2. DILTIAZEM HYDROCHLORIDE [Suspect]
     Indication: SUPRAVENTRICULAR TACHYCARDIA
     Dosage: ONE TABLET DAILY OROPHARINGEAL FEW MONTH IN 2008
     Route: 049
     Dates: start: 20101101, end: 20120410

REACTIONS (3)
  - PRODUCT SUBSTITUTION ISSUE [None]
  - MALAISE [None]
  - PALPITATIONS [None]
